FAERS Safety Report 11676219 (Version 1)
Quarter: 2015Q4

REPORT INFORMATION
  Report Type: Spontaneous
  Country: US (occurrence: US)
  Receive Date: 20151027
  Receipt Date: 20151027
  Transmission Date: 20160304
  Serious: No
  Sender: FDA-Public Use
  Company Number: US-ELI_LILLY_AND_COMPANY-US201009001823

PATIENT
  Age: 77 Year
  Sex: Female

DRUGS (18)
  1. BETACAROTENE [Concomitant]
     Active Substance: .BETA.-CAROTENE
  2. SYNTHROID [Concomitant]
     Active Substance: LEVOTHYROXINE SODIUM
  3. METOPROLOL [Concomitant]
     Active Substance: METOPROLOL
  4. OMEPRAZOLE. [Concomitant]
     Active Substance: OMEPRAZOLE
  5. SIMVASTATIN. [Concomitant]
     Active Substance: SIMVASTATIN
  6. ESTRADIOL. [Concomitant]
     Active Substance: ESTRADIOL
  7. HYDROCODONE [Concomitant]
     Active Substance: HYDROCODONE
  8. FLUTICASONE [Concomitant]
     Active Substance: FLUTICASONE\FLUTICASONE PROPIONATE
  9. EFFEXOR [Concomitant]
     Active Substance: VENLAFAXINE HYDROCHLORIDE
  10. ASPIRIN. [Concomitant]
     Active Substance: ASPIRIN
  11. FORTEO [Suspect]
     Active Substance: TERIPARATIDE
     Dates: start: 20100610, end: 20100816
  12. CALCIUM WITH VITAMIN D [Concomitant]
     Active Substance: CALCIUM\VITAMIN D
  13. AMLODIPINE [Concomitant]
     Active Substance: AMLODIPINE BESYLATE
  14. MULTIVITAMIN [Concomitant]
     Active Substance: VITAMINS
  15. ALPRAZOLAM. [Concomitant]
     Active Substance: ALPRAZOLAM
  16. NASAL SPRAY [Concomitant]
     Active Substance: UNSPECIFIED INGREDIENT
  17. OCEAN SALINE NASAL SPRAY [Concomitant]
     Active Substance: SODIUM CHLORIDE
  18. VITAMIN B12 [Concomitant]
     Active Substance: CYANOCOBALAMIN
     Dosage: UNK, MONTHLY (1/M)

REACTIONS (2)
  - Blood creatinine increased [Unknown]
  - Henoch-Schonlein purpura [Not Recovered/Not Resolved]

NARRATIVE: CASE EVENT DATE: 20100816
